FAERS Safety Report 5411052-4 (Version None)
Quarter: 2007Q3

REPORT INFORMATION
  Report Type: 
  Country: None (occurrence: None)
  Receive Date: 20070713
  Receipt Date: 20070508
  Transmission Date: 20080115
  Serious: No
  Sender: FDA-Public Use
  Company Number: 2007SP001705

PATIENT
  Age: 78 Year
  Sex: Male
  Weight: 81.6475 kg

DRUGS (10)
  1. LUNESTA [Suspect]
     Indication: INSOMNIA
     Dosage: 3 MG;PRN;ORAL
     Route: 048
     Dates: start: 20070501
  2. ZOLPIDEM TARTRATE [Suspect]
     Indication: INSOMNIA
     Dosage: PRN;ORAL
     Route: 048
  3. DETROL [Concomitant]
  4. PROSCAR [Concomitant]
  5. HYTRIN [Concomitant]
  6. SIMVASTATIN [Concomitant]
  7. PRILOSEC [Concomitant]
  8. LAXATIVES [Concomitant]
  9. PROPOXYPHENE NAPSYLATE W/ ACETAMINOPHEN [Concomitant]
  10. TYLENOL (CAPLET) [Concomitant]

REACTIONS (1)
  - MIDDLE INSOMNIA [None]
